FAERS Safety Report 23102397 (Version 6)
Quarter: 2024Q2

REPORT INFORMATION
  Report Type: Spontaneous
  Country: US (occurrence: US)
  Receive Date: 20231025
  Receipt Date: 20240418
  Transmission Date: 20240716
  Serious: Yes (Hospitalization, Other)
  Sender: FDA-Public Use
  Company Number: US-GLENMARK PHARMACEUTICALS-2023GMK085801

PATIENT

DRUGS (5)
  1. OMEPRAZOLE [Suspect]
     Active Substance: OMEPRAZOLE
     Indication: Therapeutic procedure
     Dosage: 1 DOSAGE FORM, AM
     Route: 048
  2. OMEPRAZOLE [Suspect]
     Active Substance: OMEPRAZOLE
     Dosage: UNK, HS
     Route: 048
  3. OMEPRAZOLE [Suspect]
     Active Substance: OMEPRAZOLE
     Indication: Therapeutic procedure
     Dosage: UNK, FOR A WHILE
     Route: 048
  4. OMEPRAZOLE [Suspect]
     Active Substance: OMEPRAZOLE
     Dosage: 2 DOSAGE FORM, BID (TAKING 2 TABLETS OF 40 MG IN THE MORNING AND 2 TABLETS OF 40 MG AT NIGHT)
     Route: 065
     Dates: start: 1996
  5. VITAMIN B [Concomitant]
     Active Substance: VITAMIN B
     Indication: Product used for unknown indication
     Dosage: UNK
     Route: 065

REACTIONS (41)
  - Prostatomegaly [Not Recovered/Not Resolved]
  - Muscle disorder [Not Recovered/Not Resolved]
  - Diverticulitis [Unknown]
  - Atrial fibrillation [Not Recovered/Not Resolved]
  - Gastrointestinal disorder [Not Recovered/Not Resolved]
  - Digestive enzyme increased [Not Recovered/Not Resolved]
  - Back disorder [Not Recovered/Not Resolved]
  - Loss of consciousness [Unknown]
  - Neoplasm malignant [Unknown]
  - Pancreatitis [Not Recovered/Not Resolved]
  - Hepatitis [Not Recovered/Not Resolved]
  - Chest pain [Not Recovered/Not Resolved]
  - Diverticulum [Unknown]
  - Gastric infection [Unknown]
  - Lymphocyte count abnormal [Unknown]
  - Morbid thoughts [Unknown]
  - Drug withdrawal syndrome [Not Recovered/Not Resolved]
  - Bladder disorder [Not Recovered/Not Resolved]
  - Oesophageal disorder [Not Recovered/Not Resolved]
  - General physical health deterioration [Not Recovered/Not Resolved]
  - Illness [Not Recovered/Not Resolved]
  - Discomfort [Not Recovered/Not Resolved]
  - Nervous system disorder [Not Recovered/Not Resolved]
  - Atrioventricular block [Unknown]
  - Hernia [Not Recovered/Not Resolved]
  - Renal disorder [Not Recovered/Not Resolved]
  - Dysphagia [Not Recovered/Not Resolved]
  - Glucose tolerance impaired [Not Recovered/Not Resolved]
  - Dyspepsia [Unknown]
  - Osteoporosis [Unknown]
  - Adverse reaction [Unknown]
  - Cardiac disorder [Unknown]
  - Blood glucose increased [Unknown]
  - Pain [Not Recovered/Not Resolved]
  - Abdominal pain upper [Not Recovered/Not Resolved]
  - Malaise [Unknown]
  - Vomiting [Not Recovered/Not Resolved]
  - Nausea [Unknown]
  - Muscular weakness [Unknown]
  - Drug ineffective [Unknown]
  - Loss of personal independence in daily activities [Unknown]
